FAERS Safety Report 21498464 (Version 2)
Quarter: 2022Q4

REPORT INFORMATION
  Report Type: Report from Study
  Country: DE (occurrence: DE)
  Receive Date: 20221024
  Receipt Date: 20221118
  Transmission Date: 20230113
  Serious: Yes (Life-Threatening, Hospitalization, Other)
  Sender: FDA-Public Use
  Company Number: None

PATIENT
  Age: 62 Year
  Sex: Male

DRUGS (76)
  1. NORVASC [Suspect]
     Active Substance: AMLODIPINE BESYLATE
     Indication: Cardiovascular disorder
     Dosage: 5 MILLIGRAM, QD (1-0-0)
     Route: 048
     Dates: start: 20050704, end: 20050709
  2. MARCUMAR [Suspect]
     Active Substance: PHENPROCOUMON
     Indication: Atrial fibrillation
     Dosage: ACCORDING INR
     Route: 065
     Dates: start: 20050710
  3. ISOPTIN [Suspect]
     Active Substance: VERAPAMIL HYDROCHLORIDE
     Indication: Atrial fibrillation
     Dosage: 80 MILLIGRAM, QD (0-0-0-1, 1-1-0-0)
     Route: 048
     Dates: start: 20050709
  4. THEOPHYLLINE [Suspect]
     Active Substance: THEOPHYLLINE
     Indication: Chronic obstructive pulmonary disease
     Dosage: 600 MILLIGRAM, QD
     Route: 048
     Dates: start: 20050704, end: 20050709
  5. PREDNISOLONE [Suspect]
     Active Substance: PREDNISOLONE
     Indication: Chronic obstructive pulmonary disease
     Dosage: 20 MILLIGRAM, QD
     Route: 048
     Dates: start: 20050628, end: 20050705
  6. PREDNISOLONE [Suspect]
     Active Substance: PREDNISOLONE
     Dosage: 50 MILLIGRAM, QD
     Route: 048
     Dates: start: 20050628, end: 20050705
  7. PREDNISOLONE [Suspect]
     Active Substance: PREDNISOLONE
     Dosage: 50 MG 0-0, 280 MG-0-0, 20 MG-0-0, 5 MG 1-2-3
     Route: 065
     Dates: start: 20050630, end: 20050705
  8. PREDNISOLONE [Suspect]
     Active Substance: PREDNISOLONE
     Dosage: 80 MILLIGRAM, QD
     Route: 048
     Dates: start: 20050707, end: 20050715
  9. PREDNISOLONE [Suspect]
     Active Substance: PREDNISOLONE
     Dosage: 20 MILLIGRAM, QD
     Route: 048
     Dates: start: 20050719
  10. PREDNISOLONE [Suspect]
     Active Substance: PREDNISOLONE
     Dosage: 5 MILLIGRAM
     Route: 048
     Dates: start: 20050719
  11. PREDNISOLONE [Suspect]
     Active Substance: PREDNISOLONE
     Dosage: 100 MG, QD
     Route: 065
  12. PREDNISOLONE [Suspect]
     Active Substance: PREDNISOLONE
     Dosage: 50 MILLIGRAM, QD
     Route: 065
     Dates: start: 20050719
  13. PREDNISOLONE [Suspect]
     Active Substance: PREDNISOLONE
     Dosage: 15 MILLIGRAM, QD
     Route: 065
     Dates: start: 20050716, end: 20050718
  14. FUROSEMIDE [Suspect]
     Active Substance: FUROSEMIDE
     Indication: Hypertension
     Dosage: 40 MILLIGRAM, QD
     Route: 048
     Dates: start: 20050707
  15. OXAZEPAM [Suspect]
     Active Substance: OXAZEPAM
     Indication: Sedative therapy
     Dosage: NOT STATED
     Route: 048
     Dates: start: 20050708, end: 20050708
  16. OMEPRAZOLE [Suspect]
     Active Substance: OMEPRAZOLE
     Indication: Prophylaxis against gastrointestinal ulcer
     Dosage: 20 MILLIGRAM, QD, 0-0-1.
     Route: 065
     Dates: start: 20050718
  17. OMEPRAZOLE [Suspect]
     Active Substance: OMEPRAZOLE
     Indication: Prophylaxis
     Dosage: 20 MILLIGRAM, QD
     Route: 065
     Dates: start: 20050719
  18. PHENPROCOUMON [Suspect]
     Active Substance: PHENPROCOUMON
     Indication: Atrial fibrillation
     Dosage: UNK
     Route: 065
     Dates: start: 20050710
  19. PANTOZOL [Suspect]
     Active Substance: PANTOPRAZOLE SODIUM
     Indication: Prophylaxis against gastrointestinal ulcer
     Dosage: 40 MILLIGRAM, QD
     Route: 048
     Dates: start: 20050629, end: 20050630
  20. PANTOZOL [Suspect]
     Active Substance: PANTOPRAZOLE SODIUM
     Indication: Prophylaxis
     Dosage: DAILY DOSE: 40 MG MILLIGRAM(S) EVERY DAY
     Route: 048
     Dates: start: 20050703, end: 20050718
  21. CLORAZEPATE DIPOTASSIUM [Suspect]
     Active Substance: CLORAZEPATE DIPOTASSIUM
     Indication: Sedative therapy
     Dosage: 5 MILLIGRAM (1-1-1-2)
     Route: 048
     Dates: start: 20050627, end: 20050702
  22. CLORAZEPATE DIPOTASSIUM [Suspect]
     Active Substance: CLORAZEPATE DIPOTASSIUM
     Dosage: 10 MG, QD
     Route: 048
     Dates: start: 20050705, end: 20050705
  23. AMBROXOL [Suspect]
     Active Substance: AMBROXOL
     Indication: Secretion discharge
     Dosage: DAILY DOSE: 28 GTT DROP(S) EVERY DAY
     Route: 048
     Dates: start: 20050701, end: 20050718
  24. AMBROXOL [Suspect]
     Active Substance: AMBROXOL
     Indication: Unevaluable event
  25. CITRIC ACID MONOHYDRATE\POTASSIUM BICARBONATE\POTASSIUM CITRATE [Suspect]
     Active Substance: CITRIC ACID MONOHYDRATE\POTASSIUM BICARBONATE\POTASSIUM CITRATE
     Indication: Hypokalaemia
     Dosage: 1 DOSAGE FORM, QD
     Route: 048
     Dates: start: 20050704, end: 20050713
  26. HEPARIN SODIUM [Suspect]
     Active Substance: HEPARIN SODIUM
     Indication: Thrombosis prophylaxis
     Dosage: DOSAGE REGIMEN: 1-0-0
     Route: 058
     Dates: start: 20050627, end: 20050709
  27. BEROTEC [Suspect]
     Active Substance: FENOTEROL HYDROBROMIDE
     Indication: Chronic obstructive pulmonary disease
     Dosage: 6 DOSAGE FORM, QW
     Route: 065
     Dates: start: 20040601
  28. BEROTEC [Suspect]
     Active Substance: FENOTEROL HYDROBROMIDE
     Indication: Chronic obstructive pulmonary disease
     Dosage: UNK, QW
     Route: 065
  29. BEROTEC [Suspect]
     Active Substance: FENOTEROL HYDROBROMIDE
     Dosage: UNK, TIW
     Route: 065
     Dates: start: 20040601
  30. SPIRIVA [Suspect]
     Active Substance: TIOTROPIUM BROMIDE MONOHYDRATE
     Indication: Chronic obstructive pulmonary disease
     Dosage: 1 DOSAGE FORM, QD
     Route: 065
     Dates: start: 20040601
  31. SPIRIVA [Suspect]
     Active Substance: TIOTROPIUM BROMIDE MONOHYDRATE
     Dosage: 1 DF, QD
  32. ACETYLCYSTEINE [Suspect]
     Active Substance: ACETYLCYSTEINE
     Indication: Secretion discharge
     Dosage: 600 MILLIGRAM, QD
     Route: 048
     Dates: start: 20050629, end: 20050712
  33. ACETYLCYSTEINE [Suspect]
     Active Substance: ACETYLCYSTEINE
     Indication: Productive cough
  34. FORADIL [Suspect]
     Active Substance: FORMOTEROL FUMARATE
     Indication: Chronic obstructive pulmonary disease
     Dosage: DAILY DOSE: 2 DF DOSAGE FORM EVERY DAY
     Route: 065
     Dates: start: 20050629, end: 20050718
  35. FORADIL [Suspect]
     Active Substance: FORMOTEROL FUMARATE
     Indication: Chronic obstructive pulmonary disease
  36. HYDROCHLOROTHIAZIDE\RAMIPRIL [Suspect]
     Active Substance: HYDROCHLOROTHIAZIDE\RAMIPRIL
     Indication: Coronary artery disease
     Dosage: 5/25
     Route: 048
     Dates: start: 20050703
  37. DIGITOXIN [Suspect]
     Active Substance: DIGITOXIN
     Indication: Coronary artery disease
     Dosage: DAILY DOSE: 0.1 MG MILLIGRAM(S) EVERY DAY
     Route: 048
     Dates: start: 20050708
  38. DIGITOXIN [Suspect]
     Active Substance: DIGITOXIN
     Indication: Coronary artery disease
  39. MINERALS\VITAMINS [Suspect]
     Active Substance: MINERALS\VITAMINS
     Indication: Osteoporosis
     Dosage: 1000 MILLIGRAM, QD (1-0-1)
     Route: 065
     Dates: start: 20050715, end: 20050718
  40. PREDNISOLONE [Suspect]
     Active Substance: PREDNISOLONE
     Indication: Chronic obstructive pulmonary disease
     Dosage: 15 MILLIGRAM, QD (1-0-0)
     Route: 048
     Dates: start: 20050716, end: 20050718
  41. PREDNISOLONE [Suspect]
     Active Substance: PREDNISOLONE
     Dosage: 15 MILLIGRAM, QD
     Route: 065
     Dates: start: 20050721, end: 20050721
  42. PREDNISOLONE [Suspect]
     Active Substance: PREDNISOLONE
     Dosage: 100 MILLIGRAM, QD
     Route: 048
     Dates: start: 20050721, end: 20050721
  43. CHOLECALCIFEROL [Suspect]
     Active Substance: CHOLECALCIFEROL
     Indication: Osteoporosis
     Dosage: 1000 INTERNATIONAL UNIT, QD (1-0-0)
     Route: 048
     Dates: start: 20050717, end: 20050717
  44. CHOLECALCIFEROL [Suspect]
     Active Substance: CHOLECALCIFEROL
     Dosage: 1000 INTERNATIONAL UNIT, QD (1-0-0)
     Route: 048
     Dates: start: 20050718, end: 20050718
  45. SERETIDE [Suspect]
     Active Substance: FLUTICASONE PROPIONATE\SALMETEROL XINAFOATE
     Indication: Chronic obstructive pulmonary disease
     Dosage: BID
     Route: 065
     Dates: start: 20050718
  46. VERAPAMIL HYDROCHLORIDE [Suspect]
     Active Substance: VERAPAMIL HYDROCHLORIDE
     Indication: Atrial fibrillation
     Dosage: 80 MILLIGRAM
     Route: 048
     Dates: start: 20050718
  47. VERAPAMIL HYDROCHLORIDE [Suspect]
     Active Substance: VERAPAMIL HYDROCHLORIDE
     Indication: Atrial fibrillation
     Dosage: DOSAGE REGIMEN: 1-0-0-0, 1-1-0-1
     Route: 048
     Dates: start: 20050718
  48. OMEPRAZOLE [Suspect]
     Active Substance: OMEPRAZOLE
     Indication: Prophylaxis against gastrointestinal ulcer
     Dosage: 20 MILLIGRAM, QD (0-0-1)
     Route: 048
     Dates: start: 20050718
  49. OMEPRAZOLE [Suspect]
     Active Substance: OMEPRAZOLE
     Indication: Prophylaxis
     Dosage: 0-0-1
     Route: 065
     Dates: start: 20050719
  50. OMEPRAZOLE [Suspect]
     Active Substance: OMEPRAZOLE
     Indication: Prophylaxis against gastrointestinal ulcer
  51. CALCIUM CARBONATE\CHOLECALCIFEROL [Suspect]
     Active Substance: CALCIUM CARBONATE\CHOLECALCIFEROL
     Indication: Osteoporosis
     Dosage: DOSAGE REGIMEN: 1-0-1
     Route: 048
     Dates: start: 20050718
  52. CALCIUM CARBONATE\CHOLECALCIFEROL [Suspect]
     Active Substance: CALCIUM CARBONATE\CHOLECALCIFEROL
     Dosage: 2 DOSAGE FORM, QD (1-0-1)
     Route: 048
     Dates: start: 20050719
  53. RAMIPRIL [Suspect]
     Active Substance: RAMIPRIL
     Indication: Coronary artery disease
     Dosage: QD (1-0-0)
     Route: 048
     Dates: start: 20050630, end: 20050702
  54. RAMIPRIL [Suspect]
     Active Substance: RAMIPRIL
     Indication: Cardiovascular disorder
  55. CLONIDINE [Suspect]
     Active Substance: CLONIDINE
     Indication: Alcohol withdrawal syndrome
     Dosage: 1.5 MILLIGRAM, QD (1-0-0)
     Route: 065
     Dates: start: 20050628, end: 20050630
  56. CLONIDINE [Suspect]
     Active Substance: CLONIDINE
     Indication: Alcohol withdrawal syndrome
     Dosage: 1.5 MG, QD
     Route: 065
     Dates: start: 20050703, end: 20050704
  57. NITROGLYCERIN [Suspect]
     Active Substance: NITROGLYCERIN
     Indication: Hypertension
     Dosage: DOSAGE REGIMEN: 0-0
     Route: 065
     Dates: start: 20050702, end: 20050702
  58. MOXIFLOXACIN HYDROCHLORIDE [Suspect]
     Active Substance: MOXIFLOXACIN HYDROCHLORIDE
     Indication: Chronic obstructive pulmonary disease
     Dosage: DOSAGE REGIMEN: 1-0-0,400 MG, QD
     Route: 048
     Dates: start: 20050627, end: 20050703
  59. MOXIFLOXACIN HYDROCHLORIDE [Suspect]
     Active Substance: MOXIFLOXACIN HYDROCHLORIDE
     Indication: Infection
  60. MOXIFLOXACIN HYDROCHLORIDE [Suspect]
     Active Substance: MOXIFLOXACIN HYDROCHLORIDE
     Indication: Infective exacerbation of chronic obstructive airways disease
  61. CLOMETHIAZOLE [Suspect]
     Active Substance: CLOMETHIAZOLE
     Indication: Alcohol withdrawal syndrome
     Dosage: DOSAGE REGIMEN: 2-2-2,2 DF, TID
     Route: 048
     Dates: start: 20050630, end: 20050703
  62. THEOPHYLLINE [Suspect]
     Active Substance: THEOPHYLLINE
     Indication: Chronic obstructive pulmonary disease
     Dosage: 200 MILLIGRAM, QD (3-0-0, 1-0-0)
     Route: 042
     Dates: start: 20050627, end: 20050630
  63. THEOPHYLLINE [Suspect]
     Active Substance: THEOPHYLLINE
     Dosage: 200 MILLIGRAM, QD
     Route: 042
     Dates: start: 20050718, end: 20050718
  64. THEOPHYLLINE [Suspect]
     Active Substance: THEOPHYLLINE
     Dosage: 200 MILLIGRAM, QD
     Route: 042
     Dates: start: 20050721, end: 20050721
  65. BRICANYL [Suspect]
     Active Substance: TERBUTALINE SULFATE
     Indication: Dyspnoea
     Dosage: DOSAGE REGIMEN: 1/2-0-1/2
     Route: 058
     Dates: start: 20050627, end: 20050709
  66. BECLOMETHASONE DIPROPIONATE [Suspect]
     Active Substance: BECLOMETHASONE DIPROPIONATE
     Indication: Chronic obstructive pulmonary disease
     Dosage: 2 DF DOSAGE FORM EVERY DAY
     Route: 065
     Dates: start: 20050627, end: 20050715
  67. BECLOMETHASONE DIPROPIONATE [Suspect]
     Active Substance: BECLOMETHASONE DIPROPIONATE
     Dosage: 2 DF, QD
     Route: 065
  68. FLUTICASONE PROPIONATE\SALMETEROL XINAFOATE [Suspect]
     Active Substance: FLUTICASONE PROPIONATE\SALMETEROL XINAFOATE
     Indication: Chronic obstructive pulmonary disease
     Dosage: DOSAGE REGIMEN: 1-0-1
     Route: 065
     Dates: start: 20050718
  69. HYDROCHLOROTHIAZIDE\RAMIPRIL [Suspect]
     Active Substance: HYDROCHLOROTHIAZIDE\RAMIPRIL
     Indication: Cardiovascular disorder
     Dosage: DAILY DOSE: 1 DF DOSAGE FORM EVERY DAY
     Route: 065
     Dates: start: 20050703
  70. INSULIN ASPART [Suspect]
     Active Substance: INSULIN ASPART
     Indication: Blood glucose abnormal
     Dosage: UNK
     Route: 065
     Dates: start: 20050703, end: 20050703
  71. FRUCTOSE\INSULIN BEEF [Concomitant]
     Active Substance: FRUCTOSE\INSULIN BEEF
     Indication: Blood glucose abnormal
     Dosage: UNK
     Route: 058
     Dates: start: 20050703, end: 20050703
  72. FRUCTOSE\INSULIN BEEF [Concomitant]
     Active Substance: FRUCTOSE\INSULIN BEEF
     Indication: Product used for unknown indication
  73. RINGERS SOLUTION [Concomitant]
     Active Substance: CALCIUM CHLORIDE\POTASSIUM CHLORIDE\SODIUM CHLORIDE
     Indication: Hypovolaemia
     Dosage: 1000 MILLILITER, QD (1-0-0)
     Route: 065
     Dates: start: 20050627, end: 20050703
  74. RINGERS SOLUTION [Concomitant]
     Active Substance: CALCIUM CHLORIDE\POTASSIUM CHLORIDE\SODIUM CHLORIDE
     Indication: Unevaluable event
  75. HALOPERIDOL [Concomitant]
     Active Substance: HALOPERIDOL
     Indication: Sedative therapy
     Dosage: DRUG NAME: HALOPERIDOL TROPFEN. DOSAGE REGIMEN: 10-0-0
     Route: 048
     Dates: start: 20050629, end: 20050630
  76. HALOPERIDOL [Concomitant]
     Active Substance: HALOPERIDOL
     Dosage: 10 GTT DROPS, QD
     Route: 048
     Dates: start: 20050703, end: 20050703

REACTIONS (7)
  - Toxic epidermal necrolysis [Recovered/Resolved]
  - Stevens-Johnson syndrome [Recovered/Resolved]
  - Pyrexia [Unknown]
  - Nikolsky^s sign [Unknown]
  - Blister [Unknown]
  - Pruritus [Unknown]
  - Skin lesion [Unknown]

NARRATIVE: CASE EVENT DATE: 20050721
